FAERS Safety Report 17872814 (Version 3)
Quarter: 2020Q3

REPORT INFORMATION
  Report Type: Report from Study
  Country: US (occurrence: US)
  Receive Date: 20200608
  Receipt Date: 20200901
  Transmission Date: 20201103
  Serious: Yes (Other)
  Sender: FDA-Public Use
  Company Number: US-BAUSCH-BL-2020-016428

PATIENT
  Age: 87 Year
  Sex: Male
  Weight: 76.18 kg

DRUGS (2)
  1. LACTULOSE. [Concomitant]
     Active Substance: LACTULOSE
     Indication: PRODUCT USED FOR UNKNOWN INDICATION
  2. XIFAXAN [Suspect]
     Active Substance: RIFAXIMIN
     Indication: HEPATIC ENCEPHALOPATHY
     Route: 048

REACTIONS (7)
  - Confusional state [Recovered/Resolved]
  - Dementia [Recovered/Resolved]
  - Hypersomnia [Recovered/Resolved]
  - Fungal infection [Recovered/Resolved]
  - Product dose omission issue [Unknown]
  - Urinary tract infection [Recovered/Resolved]
  - Insomnia [Recovered/Resolved]

NARRATIVE: CASE EVENT DATE: 202005
